FAERS Safety Report 17215972 (Version 1)
Quarter: 2019Q4

REPORT INFORMATION
  Report Type: Spontaneous
  Country: DE (occurrence: DE)
  Receive Date: 20191230
  Receipt Date: 20191230
  Transmission Date: 20200122
  Serious: Yes (Hospitalization, Other)
  Sender: FDA-Public Use
  Company Number: DE-MYLANLABS-2019M1129299

PATIENT
  Age: 47 Year
  Sex: Male
  Weight: 95 kg

DRUGS (7)
  1. RAMIPRIL. [Concomitant]
     Active Substance: RAMIPRIL
     Dosage: 1-0-0; AUFNAHMEMEDIKATION, NICHT PAUSIERT;
     Route: 048
  2. CHLORPROTHIXEN NEURAXPHARM [Interacting]
     Active Substance: CHLORPROTHIXENE HYDROCHLORIDE
     Indication: SCHIZOAFFECTIVE DISORDER
     Dosage: 30-30-30-100
     Route: 048
     Dates: start: 20190820, end: 20190826
  3. DIAZEPAM-RATIOPHARM [Concomitant]
     Indication: TENSION
     Dosage: 1-1-1
     Route: 048
     Dates: start: 20190822, end: 20190826
  4. BISOPROLOL [Concomitant]
     Active Substance: BISOPROLOL
     Indication: MITRAL VALVE INCOMPETENCE
     Dosage: 1-0-0; AUFNAHMEMEDIKATION, NICHT PAUSIERT;
     Route: 048
  5. ESCITALOPRAM [Suspect]
     Active Substance: ESCITALOPRAM OXALATE
     Indication: SCHIZOPHRENIA
     Dosage: DAUERHAFTE EINNAHME
     Route: 048
  6. HALOPERIDOL-RATIOPHARM [Interacting]
     Active Substance: HALOPERIDOL
     Indication: SCHIZOAFFECTIVE DISORDER
     Dosage: 1-0-1
     Route: 048
     Dates: start: 20190819, end: 20190826
  7. ARIPIPRAZOL STADA [Interacting]
     Active Substance: ARIPIPRAZOLE
     Indication: SCHIZOAFFECTIVE DISORDER
     Dosage: AUFNAHMEMEDIKATION - 26.08.2019; 1-0-0
     Route: 048

REACTIONS (13)
  - Anticholinergic syndrome [Not Recovered/Not Resolved]
  - Tachypnoea [Not Recovered/Not Resolved]
  - Transaminases increased [Not Recovered/Not Resolved]
  - Hyperthermia [Not Recovered/Not Resolved]
  - Blood creatine phosphokinase increased [Not Recovered/Not Resolved]
  - Serotonin syndrome [Not Recovered/Not Resolved]
  - Dehydration [Not Recovered/Not Resolved]
  - Drug interaction [Unknown]
  - Tachycardia [Not Recovered/Not Resolved]
  - Hypokinesia [Not Recovered/Not Resolved]
  - Blood pressure increased [Not Recovered/Not Resolved]
  - Muscle rigidity [Not Recovered/Not Resolved]
  - Neuroleptic malignant syndrome [Not Recovered/Not Resolved]

NARRATIVE: CASE EVENT DATE: 20190826
